FAERS Safety Report 13838801 (Version 1)
Quarter: 2017Q3

REPORT INFORMATION
  Report Type: Spontaneous
  Country: US (occurrence: US)
  Receive Date: 20170805
  Receipt Date: 20170805
  Transmission Date: 20171127
  Serious: No
  Sender: FDA-Public Use
  Company Number: None

PATIENT
  Age: 71 Year
  Sex: Female

DRUGS (1)
  1. FORTEO [Suspect]
     Active Substance: TERIPARATIDE

REACTIONS (7)
  - Wrist fracture [None]
  - Head injury [None]
  - Fall [None]
  - Dizziness [None]
  - Contusion [None]
  - Orthostatic hypotension [None]
  - Clavicle fracture [None]

NARRATIVE: CASE EVENT DATE: 20170701
